FAERS Safety Report 17464160 (Version 1)
Quarter: 2020Q1

REPORT INFORMATION
  Report Type: Report from Study
  Country: US (occurrence: US)
  Receive Date: 20200226
  Receipt Date: 20200226
  Transmission Date: 20200409
  Serious: Yes (Other)
  Sender: FDA-Public Use
  Company Number: US-MYLANLABS-2020M1020382

PATIENT
  Sex: Male
  Weight: 116 kg

DRUGS (1)
  1. GLATIRAMER ACETATE INJECTION [Suspect]
     Active Substance: GLATIRAMER ACETATE
     Indication: MULTIPLE SCLEROSIS
     Dosage: 40 MILLIGRAM, 3XW (3X WEEKLY)
     Route: 058
     Dates: end: 20190126

REACTIONS (3)
  - Back pain [Unknown]
  - Multiple sclerosis [Unknown]
  - Sinus disorder [Unknown]
